FAERS Safety Report 8046667-0 (Version None)
Quarter: 2012Q1

REPORT INFORMATION
  Report Type: 
  Country: None (occurrence: None)
  Receive Date: 20120115
  Receipt Date: 20120102
  Transmission Date: 20120608
  Serious: Yes (Death, Other)
  Sender: FDA-Public Use
  Company Number: US-BAYER-2012-003101

PATIENT
  Age: 38 Year
  Sex: Female

DRUGS (6)
  1. QUININE SULFATE [Suspect]
     Route: 048
  2. ESCITALOPRAM [Concomitant]
  3. HYDROMORPHONE HCL [Concomitant]
  4. PARACETAMOL + DIPHENHYDRAMINE [Suspect]
     Route: 048
  5. CARPROFEN [Suspect]
     Route: 048
  6. QUETIAPINE [Suspect]
     Route: 048

REACTIONS (4)
  - VENTRICULAR TACHYCARDIA [None]
  - TOXICITY TO VARIOUS AGENTS [None]
  - VENTRICULAR FIBRILLATION [None]
  - CONVULSION [None]
